FAERS Safety Report 5528494-9 (Version None)
Quarter: 2007Q4

REPORT INFORMATION
  Report Type: 
  Country: None (occurrence: None)
  Receive Date: 20071128
  Receipt Date: 20071113
  Transmission Date: 20080405
  Serious: Yes (Hospitalization, Disabling, Other)
  Sender: FDA-Public Use
  Company Number: GB-MERCK-0711GBR00006

PATIENT
  Age: 77 Year
  Sex: Female

DRUGS (5)
  1. ZOCOR [Suspect]
     Indication: HYPERLIPIDAEMIA
     Route: 048
     Dates: start: 20041108, end: 20071001
  2. ZOCOR [Suspect]
     Indication: HYPERCHOLESTEROLAEMIA
     Route: 048
     Dates: start: 20041108, end: 20071001
  3. ATENOLOL [Concomitant]
     Indication: HYPERTENSION
     Route: 065
     Dates: start: 20011108
  4. ACETAMINOPHEN [Concomitant]
     Indication: OSTEOARTHRITIS
     Route: 065
     Dates: start: 19981217
  5. FLUOXETINE [Concomitant]
     Indication: DEPRESSION
     Route: 065
     Dates: start: 20040808

REACTIONS (2)
  - DISLOCATION OF JOINT PROSTHESIS [None]
  - LOSS OF CONSCIOUSNESS [None]
